FAERS Safety Report 11592873 (Version 1)
Quarter: 2015Q4

REPORT INFORMATION
  Report Type: Spontaneous
  Country: IT (occurrence: IT)
  Receive Date: 20151005
  Receipt Date: 20151005
  Transmission Date: 20160304
  Serious: Yes (Hospitalization, Other)
  Sender: FDA-Public Use
  Company Number: IT-IPSEN BIOPHARMACEUTICALS, INC.-2015-6448

PATIENT

DRUGS (1)
  1. LANREOTIDE [Suspect]
     Active Substance: LANREOTIDE
     Indication: ACROMEGALY
     Dosage: NOT REPORTED
     Route: 065

REACTIONS (28)
  - Biliary colic [Unknown]
  - Glucose tolerance test abnormal [Unknown]
  - Cholelithiasis [Unknown]
  - Abdominal pain [Unknown]
  - Diabetes mellitus [Unknown]
  - Blood glucose abnormal [Unknown]
  - Vomiting [Unknown]
  - Hyperglycaemia [Unknown]
  - Injection site pain [Unknown]
  - Injection site induration [Unknown]
  - Injection site nodule [Unknown]
  - Alopecia [Recovered/Resolved]
  - Pruritus [Unknown]
  - Headache [Unknown]
  - Electrocardiogram QT prolonged [Unknown]
  - Glycosylated haemoglobin increased [Unknown]
  - Injection site erythema [Unknown]
  - Injection site swelling [Unknown]
  - Condition aggravated [Unknown]
  - Impaired insulin secretion [Unknown]
  - Nausea [Unknown]
  - Flatulence [Unknown]
  - Blood bilirubin increased [Unknown]
  - Libido decreased [Unknown]
  - Diarrhoea [Unknown]
  - Constipation [Unknown]
  - Sinus bradycardia [Unknown]
  - Asthenia [Unknown]
